FAERS Safety Report 8809964 (Version 3)
Quarter: 2013Q4

REPORT INFORMATION
  Report Type: Spontaneous
  Country: KR (occurrence: US)
  Receive Date: 20120926
  Receipt Date: 20131108
  Transmission Date: 20140711
  Serious: Yes (Other)
  Sender: FDA-Public Use
  Company Number: KR-009507513-1207USA009216

PATIENT
  Age: 62 Year
  Sex: Female

DRUGS (1)
  1. TEMODAR [Suspect]
     Indication: GLIOBLASTOMA MULTIFORME
     Dosage: UNK

REACTIONS (1)
  - Neoplasm progression [Recovered/Resolved]
